FAERS Safety Report 8465076-3 (Version None)
Quarter: 2012Q2

REPORT INFORMATION
  Report Type: 
  Country: None (occurrence: None)
  Receive Date: 20120626
  Receipt Date: 20120620
  Transmission Date: 20120825
  Serious: Yes (Death)
  Sender: FDA-Public Use
  Company Number: JP-SANOFI-AVENTIS-2012SA045027

PATIENT
  Age: 81 Year
  Sex: Male

DRUGS (6)
  1. CLOPIDOGREL BISULFATE [Suspect]
     Dosage: MAINTENANCE DOSE
     Route: 048
     Dates: start: 20120331, end: 20120409
  2. FAMOTIDINE [Suspect]
     Indication: GASTRIC CANCER
     Route: 048
     Dates: end: 20120410
  3. REBAMIPIDE [Suspect]
     Indication: GASTRIC CANCER
     Route: 048
     Dates: end: 20120410
  4. CLOPIDOGREL BISULFATE [Suspect]
     Dosage: STARTING DOSE
     Route: 048
     Dates: start: 20120330, end: 20120330
  5. ROSUVASTATIN [Suspect]
     Route: 048
     Dates: start: 20120331, end: 20120410
  6. ASPIRIN [Concomitant]
     Route: 048
     Dates: start: 20120330, end: 20120410

REACTIONS (1)
  - INTERSTITIAL LUNG DISEASE [None]
